FAERS Safety Report 7689489-2 (Version None)
Quarter: 2011Q3

REPORT INFORMATION
  Report Type: 
  Country: None (occurrence: None)
  Receive Date: 20110817
  Receipt Date: 20110811
  Transmission Date: 20111222
  Serious: Yes (Life-Threatening, Hospitalization)
  Sender: FDA-Public Use
  Company Number: GB-PFIZER INC-2011152371

PATIENT
  Age: 6 Year
  Sex: Male

DRUGS (5)
  1. SOMATROPIN [Suspect]
     Indication: SEPTO-OPTIC DYSPLASIA
  2. SOMATROPIN [Suspect]
     Indication: GROWTH HORMONE DEFICIENCY
     Dosage: 3.5 MG, PER WEEK
     Dates: start: 19980416
  3. DDAVP [Concomitant]
     Dosage: 0.05 ML,
     Dates: start: 19980315
  4. LACTULOSE [Concomitant]
     Dosage: 20 ML, DAILY
     Dates: start: 19980407
  5. DDAVP [Concomitant]
     Dosage: 0.2 ML, DAILY
     Dates: start: 19980528

REACTIONS (2)
  - HYPONATRAEMIA [None]
  - CONVULSION [None]
